FAERS Safety Report 9015170 (Version 1)
Quarter: 2013Q1

REPORT INFORMATION
  Report Type: Spontaneous
  Country: US (occurrence: None)
  Receive Date: 20130103
  Receipt Date: 20130103
  Transmission Date: 20140127
  Serious: Yes (Other)
  Sender: FDA-Public Use
  Company Number: USA/USA/12/0027232

PATIENT
  Age: 57 Year
  Sex: Female

DRUGS (4)
  1. CETIRIZINE [Suspect]
     Indication: URTICARIA CHRONIC
  2. FEXOFENADINE [Suspect]
     Indication: URTICARIA CHRONIC
  3. RANITIDINE [Suspect]
     Indication: URTICARIA CHRONIC
  4. CORTICOSTEROID [Suspect]
     Indication: URTICARIA CHRONIC

REACTIONS (5)
  - Hepatitis acute [None]
  - Headache [None]
  - Diarrhoea [None]
  - Chromaturia [None]
  - Hepatotoxicity [None]
